FAERS Safety Report 23810972 (Version 1)
Quarter: 2024Q2

REPORT INFORMATION
  Report Type: Spontaneous
  Country: CN (occurrence: CN)
  Receive Date: 20240502
  Receipt Date: 20240502
  Transmission Date: 20240716
  Serious: Yes (Other)
  Sender: FDA-Public Use
  Company Number: CN-WOODWARD-2024-CN-000140

PATIENT
  Age: 60 Year
  Sex: Male

DRUGS (4)
  1. RABEPRAZOLE SODIUM [Suspect]
     Active Substance: RABEPRAZOLE SODIUM
     Indication: Helicobacter infection
     Dosage: (20 MILLIGRAM(S)); FREQUENCY UNKNOWN
     Route: 048
     Dates: start: 20240408, end: 20240416
  2. CLARITHROMYCIN [Suspect]
     Active Substance: CLARITHROMYCIN
     Dosage: (1000 MILLIGRAM(S)); FREQUENCY UNKNOWN
     Route: 048
     Dates: start: 20240408, end: 20240416
  3. BISMUTH SUBCITRATE [Suspect]
     Active Substance: BISMUTH SUBCITRATE
     Dosage: 480 MILLIGRAM(S));  FREQUENCY UNKNOWN
     Route: 048
     Dates: start: 20240408, end: 20240416
  4. AMOXICILLIN [Suspect]
     Active Substance: AMOXICILLIN
     Dosage: (2 GRAM(S)); FREQUENCY UNKNOWN
     Route: 048
     Dates: start: 20240408, end: 20240416

REACTIONS (3)
  - Rash macular [Recovering/Resolving]
  - Pruritus [Recovering/Resolving]
  - Drug eruption [Recovering/Resolving]

NARRATIVE: CASE EVENT DATE: 20240414
